FAERS Safety Report 7113504-8 (Version None)
Quarter: 2010Q4

REPORT INFORMATION
  Report Type: 
  Country: None (occurrence: None)
  Receive Date: 20101119
  Receipt Date: 20101110
  Transmission Date: 20110411
  Serious: No
  Sender: FDA-Public Use
  Company Number: US-PFIZER INC-2010147112

PATIENT
  Sex: Female

DRUGS (5)
  1. EFFEXOR [Suspect]
     Dosage: UNKNOWN
     Dates: end: 20100101
  2. ZOLOFT [Suspect]
     Dosage: UNKNOWN
     Dates: end: 20100101
  3. PAXIL [Suspect]
     Dosage: UNKNOWN
     Dates: end: 20100101
  4. CYMBALTA [Suspect]
     Dosage: UNKNOWN
     Dates: end: 20100101
  5. CELEXA [Suspect]
     Dosage: UNKNOWN
     Dates: end: 20100101

REACTIONS (5)
  - ANGER [None]
  - DEPRESSION [None]
  - DIZZINESS [None]
  - DRUG WITHDRAWAL SYNDROME [None]
  - FEELING ABNORMAL [None]
